FAERS Safety Report 7184106 (Version 2)
Quarter: 2014Q3

REPORT INFORMATION
  Report Type: Spontaneous
  Country: CA (occurrence: CA)
  Receive Date: 20091123
  Receipt Date: 20140728
  Transmission Date: 20150326
  Serious: Yes (Hospitalization, Other)
  Sender: FDA-Public Use
  Company Number: CA-RANBAXY-2009US-29243

PATIENT

DRUGS (4)
  1. CEFPROZIL. [Suspect]
     Active Substance: CEFPROZIL
     Indication: ARTHROPOD BITE
     Dosage: UNK, UNK
     Route: 065
  2. PIPERACILLIN/TAZOBACTAM [Suspect]
     Active Substance: PIPERACILLIN SODIUM\TAZOBACTAM SODIUM
     Indication: ARTHROPOD BITE
     Route: 065
  3. MOXIFLOXACIN [Suspect]
     Active Substance: MOXIFLOXACIN
     Indication: ARTHROPOD BITE
     Route: 065
  4. FAMCICLOVIR. [Suspect]
     Active Substance: FAMCICLOVIR
     Indication: HERPES ZOSTER
     Route: 065

REACTIONS (16)
  - Sinus tachycardia [Recovered/Resolved]
  - Pulmonary oedema [Recovered/Resolved]
  - Acute generalised exanthematous pustulosis [Recovered/Resolved]
  - Fatigue [Recovered/Resolved]
  - Tongue discolouration [Recovered/Resolved]
  - Generalised erythema [Recovered/Resolved]
  - Rash pustular [Recovered/Resolved]
  - Acute respiratory failure [Recovered/Resolved]
  - Skin lesion [Recovered/Resolved]
  - Leukocytosis [Recovered/Resolved]
  - Acute lung injury [Recovered/Resolved]
  - Rash generalised [Recovered/Resolved]
  - Rash [Recovered/Resolved]
  - Pyrexia [Recovered/Resolved]
  - Hypotension [Recovered/Resolved]
  - Ejection fraction decreased [Recovered/Resolved]
